FAERS Safety Report 9322834 (Version 1)
Quarter: 2013Q2

REPORT INFORMATION
  Report Type: Spontaneous
  Country: CN (occurrence: CN)
  Receive Date: 20130602
  Receipt Date: 20130602
  Transmission Date: 20140414
  Serious: Yes (Other)
  Sender: FDA-Public Use
  Company Number: CN-MYLANLABS-2013S1011291

PATIENT
  Age: 3 Year
  Sex: Male

DRUGS (7)
  1. DAUNORUBICIN [Suspect]
     Indication: ACUTE LYMPHOCYTIC LEUKAEMIA
     Route: 065
  2. VINCRISTINE [Suspect]
     Indication: ACUTE LYMPHOCYTIC LEUKAEMIA
     Route: 065
  3. ASPARAGINASE [Suspect]
     Indication: ACUTE LYMPHOCYTIC LEUKAEMIA
     Route: 065
  4. PREDNISONE [Suspect]
     Indication: ACUTE LYMPHOCYTIC LEUKAEMIA
     Route: 065
  5. TENIPOSIDE [Suspect]
     Route: 065
  6. CYTARABINE [Suspect]
     Route: 065
  7. METHOTREXATE [Suspect]
     Dosage: HIGH DOSE
     Route: 065

REACTIONS (2)
  - Convulsion [Recovered/Resolved]
  - Epilepsy [Recovering/Resolving]
